FAERS Safety Report 6906139-0 (Version None)
Quarter: 2010Q3

REPORT INFORMATION
  Report Type: 
  Country: None (occurrence: None)
  Receive Date: 20100804
  Receipt Date: 20100728
  Transmission Date: 20110219
  Serious: No
  Sender: FDA-Public Use
  Company Number: US-CEPHALON-2010003972

PATIENT
  Sex: Male

DRUGS (3)
  1. FENTORA [Suspect]
     Indication: BREAKTHROUGH PAIN
     Route: 002
     Dates: start: 20060701
  2. ACTIQ [Suspect]
     Indication: BREAKTHROUGH PAIN
     Route: 002
  3. DURAGESIC-100 [Concomitant]
     Indication: BREAKTHROUGH PAIN

REACTIONS (1)
  - DRUG PRESCRIBING ERROR [None]
